FAERS Safety Report 20763880 (Version 4)
Quarter: 2022Q2

REPORT INFORMATION
  Report Type: Report from Study
  Country: BE (occurrence: BE)
  Receive Date: 20220428
  Receipt Date: 20220516
  Transmission Date: 20220721
  Serious: Yes (Hospitalization)
  Sender: FDA-Public Use
  Company Number: BE-GLAXOSMITHKLINE-BE2022GSK068269

PATIENT

DRUGS (23)
  1. ATEZOLIZUMAB [Suspect]
     Active Substance: ATEZOLIZUMAB
     Indication: Ovarian epithelial cancer
     Dosage: 1200 MG
     Dates: start: 20210311, end: 20210311
  2. DOXORUBICIN [Suspect]
     Active Substance: DOXORUBICIN
     Indication: Ovarian epithelial cancer
     Dosage: 1200 MG
     Dates: start: 20210311, end: 20210311
  3. NIRAPARIB [Suspect]
     Active Substance: NIRAPARIB
     Indication: Ovarian epithelial cancer
     Dosage: 1200 MG
     Dates: start: 20210311, end: 20210311
  4. PLACEBO [Suspect]
     Active Substance: UNSPECIFIED INGREDIENT
     Indication: Ovarian epithelial cancer
     Dosage: 1200 MG
     Dates: start: 20210311, end: 20210311
  5. ATEZOLIZUMAB [Suspect]
     Active Substance: ATEZOLIZUMAB
     Dosage: 1200 MG
     Dates: start: 20220209, end: 20220209
  6. DOXORUBICIN [Suspect]
     Active Substance: DOXORUBICIN
     Dosage: 1200 MG
     Dates: start: 20220209, end: 20220209
  7. NIRAPARIB [Suspect]
     Active Substance: NIRAPARIB
     Dosage: 1200 MG
     Dates: start: 20220209, end: 20220209
  8. PLACEBO [Suspect]
     Active Substance: UNSPECIFIED INGREDIENT
     Dosage: 1200 MG
     Dates: start: 20220209, end: 20220209
  9. ATEZOLIZUMAB [Suspect]
     Active Substance: ATEZOLIZUMAB
     Indication: Ovarian epithelial cancer
     Dosage: 200 MG
     Route: 048
     Dates: start: 20210915, end: 20220208
  10. DOXORUBICIN [Suspect]
     Active Substance: DOXORUBICIN
     Indication: Ovarian epithelial cancer
     Dosage: 200 MG
     Route: 048
     Dates: start: 20210915, end: 20220208
  11. NIRAPARIB [Suspect]
     Active Substance: NIRAPARIB
     Indication: Ovarian epithelial cancer
     Dosage: 200 MG
     Route: 048
     Dates: start: 20210915, end: 20220208
  12. PLACEBO [Suspect]
     Active Substance: UNSPECIFIED INGREDIENT
     Indication: Ovarian epithelial cancer
     Dosage: 200 MG
     Route: 048
     Dates: start: 20210915, end: 20220208
  13. CARBOPLATIN [Suspect]
     Active Substance: CARBOPLATIN
     Indication: Ovarian epithelial cancer
     Dosage: 5 AUC
     Route: 042
     Dates: start: 20210311, end: 20210311
  14. CARBOPLATIN [Suspect]
     Active Substance: CARBOPLATIN
     Dosage: 5 AUC
     Route: 042
     Dates: start: 20210728, end: 20210728
  15. DOXORUBICIN HYDROCHLORIDE [Suspect]
     Active Substance: DOXORUBICIN HYDROCHLORIDE
     Indication: Ovarian epithelial cancer
     Dosage: 30 MG/M2
     Route: 042
     Dates: start: 20210311, end: 20210311
  16. DOXORUBICIN HYDROCHLORIDE [Suspect]
     Active Substance: DOXORUBICIN HYDROCHLORIDE
     Dosage: 30 MG/M2
     Route: 042
     Dates: start: 20210728, end: 20210728
  17. ASPIRIN [Concomitant]
     Active Substance: ASPIRIN
     Indication: Premedication
     Dosage: 80 MG
     Route: 048
     Dates: start: 2007
  18. BISOPROLOL [Concomitant]
     Active Substance: BISOPROLOL
     Indication: Premedication
     Dosage: 5 MG
     Route: 048
     Dates: start: 2007
  19. EZETIMIBE\SIMVASTATIN [Concomitant]
     Active Substance: EZETIMIBE\SIMVASTATIN
     Indication: Premedication
     Dosage: 10 - 20 MG
     Route: 048
     Dates: start: 2007
  20. LYRICA [Concomitant]
     Active Substance: PREGABALIN
     Indication: Neuralgia
     Dosage: 150 MG
     Route: 048
     Dates: start: 20210915
  21. VOLTAREN [Concomitant]
     Active Substance: DICLOFENAC SODIUM
     Indication: Arthralgia
     Dosage: 1 DF
     Route: 061
     Dates: start: 20210826
  22. AUGMENTIN [Concomitant]
     Active Substance: AMOXICILLIN\CLAVULANATE POTASSIUM
     Dosage: 875-125 MG, TID
  23. CLARITHROMYCIN [Concomitant]
     Active Substance: CLARITHROMYCIN
     Dosage: 500 MG, BID

REACTIONS (1)
  - Pneumonia [Not Recovered/Not Resolved]

NARRATIVE: CASE EVENT DATE: 20220420
